FAERS Safety Report 24215551 (Version 2)
Quarter: 2024Q3

REPORT INFORMATION
  Report Type: Spontaneous
  Country: PL (occurrence: PL)
  Receive Date: 20240816
  Receipt Date: 20240926
  Transmission Date: 20241017
  Serious: Yes (Other)
  Sender: JOHNSON AND JOHNSON
  Company Number: PL-JNJFOC-20240819836

PATIENT
  Age: 7 Year
  Sex: Female
  Weight: 18 kg

DRUGS (5)
  1. ACETAMINOPHEN [Suspect]
     Active Substance: ACETAMINOPHEN
     Indication: Headache
     Route: 065
  2. ACETAMINOPHEN [Suspect]
     Active Substance: ACETAMINOPHEN
     Indication: Body temperature increased
     Route: 065
  3. CEFACLOR [Suspect]
     Active Substance: CEFACLOR
     Indication: Cough
     Dosage: AFTER A FEW DAYS, DUE TO POOR COMPLIANCE, THE DOSAGE WAS MODIFIED TO 40 MG/KG BODY WEIGHT 2 TIMES A
     Route: 065
  4. CEFACLOR [Suspect]
     Active Substance: CEFACLOR
     Indication: Pyrexia
     Route: 065
  5. OCTENIDINE [Concomitant]
     Active Substance: OCTENIDINE
     Indication: Antibiotic therapy
     Route: 061

REACTIONS (5)
  - Burning sensation [Recovered/Resolved]
  - Loss of consciousness [Recovered/Resolved]
  - Abdominal pain [Recovered/Resolved]
  - Pruritus [Recovered/Resolved]
  - Drug ineffective [Unknown]
